FAERS Safety Report 9116510 (Version 2)
Quarter: 2013Q2

REPORT INFORMATION
  Report Type: Spontaneous
  Country: GB (occurrence: GB)
  Receive Date: 20130225
  Receipt Date: 20130617
  Transmission Date: 20140414
  Serious: Yes (Other)
  Sender: FDA-Public Use
  Company Number: PHHY2013GB016760

PATIENT
  Age: 49 Year
  Sex: Male

DRUGS (5)
  1. METFORMIN [Suspect]
     Indication: DIABETES MELLITUS
     Dosage: 500 MG, UNK
     Dates: start: 20120905, end: 20130124
  2. METFORMIN [Suspect]
     Dosage: UNK UKN, UNK
  3. GLICLAZIDE [Concomitant]
  4. FLUANXOL [Concomitant]
     Indication: ANTIDEPRESSANT THERAPY
     Dosage: 2 DF, PER DAY
  5. LANSOPRAZOLE [Concomitant]

REACTIONS (5)
  - Parosmia [Recovered/Resolved]
  - Product quality issue [Recovered/Resolved]
  - Blood glucose increased [Recovered/Resolved]
  - Dysgeusia [Recovered/Resolved]
  - Drug ineffective [Recovered/Resolved]
